FAERS Safety Report 5922509-1 (Version None)
Quarter: 2008Q4

REPORT INFORMATION
  Report Type: 
  Country: None (occurrence: None)
  Receive Date: 20081017
  Receipt Date: 20081008
  Transmission Date: 20090506
  Serious: Yes (Other)
  Sender: FDA-Public Use
  Company Number: PHHY2008CA23457

PATIENT
  Sex: Male

DRUGS (5)
  1. CLOZARIL [Suspect]
     Indication: SCHIZOPHRENIA
     Dosage: 25 MG/DAY
     Route: 048
     Dates: start: 20080917, end: 20080918
  2. CLOZARIL [Suspect]
     Dosage: 12.5 MG
  3. RISPERIDONE [Concomitant]
     Dosage: 5 MG
  4. EPIVAL [Concomitant]
     Dosage: 750 MG
  5. CLOBAZAM [Concomitant]
     Dosage: 30 MG

REACTIONS (3)
  - HEART RATE INCREASED [None]
  - ORTHOSTATIC HYPOTENSION [None]
  - POSTURAL ORTHOSTATIC TACHYCARDIA SYNDROME [None]
